FAERS Safety Report 15669826 (Version 1)
Quarter: 2018Q4

REPORT INFORMATION
  Report Type: Spontaneous
  Country: GB (occurrence: GB)
  Receive Date: 20181129
  Receipt Date: 20181129
  Transmission Date: 20190205
  Serious: Yes (Other)
  Sender: FDA-Public Use
  Company Number: GB-PFIZER INC-2018488122

PATIENT
  Age: 38 Year
  Sex: Female

DRUGS (1)
  1. PREGABALIN. [Suspect]
     Active Substance: PREGABALIN
     Indication: FIBROMYALGIA
     Dosage: UNK
     Dates: start: 2007

REACTIONS (12)
  - Weight increased [Unknown]
  - Chills [Unknown]
  - Paraesthesia [Unknown]
  - White blood cell count abnormal [Unknown]
  - Drug withdrawal syndrome [Recovered/Resolved]
  - Pain [Unknown]
  - Feeling abnormal [Unknown]
  - Loss of personal independence in daily activities [Unknown]
  - Joint stiffness [Unknown]
  - Metabolic disorder [Unknown]
  - Crying [Unknown]
  - Immunodeficiency [Unknown]
